FAERS Safety Report 9345088 (Version 4)
Quarter: 2013Q3

REPORT INFORMATION
  Report Type: Spontaneous
  Country: JP (occurrence: JP)
  Receive Date: 20130612
  Receipt Date: 20130903
  Transmission Date: 20140515
  Serious: Yes (Disabling, Other)
  Sender: FDA-Public Use
  Company Number: JP-ELI_LILLY_AND_COMPANY-JP201306000014

PATIENT
  Sex: Male
  Weight: 79.7 kg

DRUGS (11)
  1. ALIMTA [Suspect]
     Indication: LUNG ADENOCARCINOMA
     Dosage: 500 MG/M2, DAY1
     Route: 042
     Dates: start: 20120726, end: 20121017
  2. ALIMTA [Suspect]
     Dosage: 500/M2, DAY1
     Route: 042
     Dates: start: 20121107, end: 20121107
  3. ALIMTA [Suspect]
     Dosage: 400 MG/M2, DAY1
     Route: 042
     Dates: start: 20121128, end: 20130508
  4. AVASTIN [Suspect]
     Indication: LUNG ADENOCARCINOMA
     Dosage: 15 MG/M2, DAY1
     Route: 042
     Dates: start: 20120726, end: 20121017
  5. AVASTIN [Suspect]
     Dosage: 15 MG/M2, DAY1
     Route: 042
     Dates: start: 20111107, end: 20111107
  6. AVASTIN [Suspect]
     Dosage: 12 MG/M2, DAY1
     Route: 042
     Dates: start: 20121128, end: 20130528
  7. METHYCOBAL [Concomitant]
     Indication: PROPHYLAXIS
     Dosage: 1 G, QD
     Route: 048
     Dates: start: 20120709
  8. ZOMETA [Concomitant]
     Indication: METASTASES TO BONE
     Dosage: 4 MG, QD
     Route: 042
     Dates: start: 20121107, end: 20130322
  9. PANVITAN [Concomitant]
     Indication: PROPHYLAXIS
     Dosage: 1000 MG, UNK
     Route: 030
     Dates: start: 20120709
  10. CARBOPLATIN [Concomitant]
     Indication: LUNG ADENOCARCINOMA
     Dosage: UNK
     Route: 042
     Dates: start: 20120726, end: 20121017
  11. NEUTROGIN [Concomitant]
     Indication: NEUTROPENIA
     Dosage: 100 UG, QD
     Route: 058
     Dates: start: 20121114, end: 20121117

REACTIONS (2)
  - Hypoaesthesia [Not Recovered/Not Resolved]
  - Neutropenia [Unknown]
